FAERS Safety Report 7324262-6 (Version None)
Quarter: 2011Q1

REPORT INFORMATION
  Report Type: 
  Country: None (occurrence: None)
  Receive Date: 20110301
  Receipt Date: 20110222
  Transmission Date: 20110831
  Serious: Yes (Hospitalization)
  Sender: FDA-Public Use
  Company Number: US-AMGEN-USASP2011010365

PATIENT
  Age: 63 Year
  Sex: Female

DRUGS (1)
  1. ENBREL [Suspect]
     Indication: PSORIATIC ARTHROPATHY
     Dates: start: 20110120

REACTIONS (5)
  - INJECTION SITE REACTION [None]
  - PAIN [None]
  - PNEUMONIA [None]
  - PYREXIA [None]
  - INJECTION SITE ERYTHEMA [None]
